FAERS Safety Report 9921272 (Version 2)
Quarter: 2014Q2

REPORT INFORMATION
  Report Type: Spontaneous
  Country: BR (occurrence: BR)
  Receive Date: 20140225
  Receipt Date: 20140416
  Transmission Date: 20141212
  Serious: Yes (Other)
  Sender: FDA-Public Use
  Company Number: BR-ROCHE-1352643

PATIENT
  Sex: Female
  Weight: 84 kg

DRUGS (2)
  1. BONVIVA [Suspect]
     Indication: OSTEOPENIA
     Route: 048
  2. SYNTHROID [Concomitant]
     Indication: HYPERTHYROIDISM
     Route: 048

REACTIONS (6)
  - Fall [Unknown]
  - Spinal fracture [Recovered/Resolved]
  - Muscle rupture [Recovered/Resolved]
  - Hypertension [Recovering/Resolving]
  - Tachycardia [Not Recovered/Not Resolved]
  - Drug dose omission [Unknown]
